FAERS Safety Report 7765430-9 (Version None)
Quarter: 2011Q3

REPORT INFORMATION
  Report Type: 
  Country: None (occurrence: None)
  Receive Date: 20110921
  Receipt Date: 20110912
  Transmission Date: 20111222
  Serious: Yes (Disabling)
  Sender: FDA-Public Use
  Company Number: FR-BRISTOL-MYERS SQUIBB COMPANY-16076697

PATIENT
  Age: 66 Year
  Sex: Female

DRUGS (12)
  1. PREVISCAN [Suspect]
     Dosage: 1DF=0.5DF STRENGTH:20MG TABLET
     Route: 048
  2. UMULINE ZINC COMPOSE [Suspect]
     Route: 058
     Dates: start: 20100901
  3. PREDNISONE [Suspect]
     Route: 048
  4. SERETIDE [Suspect]
     Dosage: 1DF:2DF
  5. BRICANYL [Suspect]
     Route: 055
  6. AMINOPHYLLINE [Suspect]
     Dosage: STRENGTH:400MG CAPSULE
     Route: 048
  7. ATROVENT [Suspect]
     Route: 055
  8. ACTONEL [Suspect]
     Dosage: 1DF=0.1429 DF STRENGTH:35MG TABLET
     Route: 048
  9. ATARAX [Suspect]
     Dosage: STRENGTH:25MG TABLET
     Route: 048
  10. METFORMIN HCL [Suspect]
     Dosage: 3000MG
     Route: 048
  11. XOLAIR [Suspect]
     Dosage: 10.7143MG
     Route: 058
     Dates: start: 20070101
  12. OMEPRAZOLE [Suspect]
     Route: 048

REACTIONS (5)
  - CONGESTIVE CARDIOMYOPATHY [None]
  - AORTIC VALVE INCOMPETENCE [None]
  - TRICUSPID VALVE INCOMPETENCE [None]
  - MITRAL VALVE INCOMPETENCE [None]
  - EJECTION FRACTION DECREASED [None]
